FAERS Safety Report 7358857-0 (Version None)
Quarter: 2011Q1

REPORT INFORMATION
  Report Type: 
  Country: None (occurrence: None)
  Receive Date: 20110317
  Receipt Date: 20110309
  Transmission Date: 20110831
  Serious: Yes (Life-Threatening)
  Sender: FDA-Public Use
  Company Number: B0705383A

PATIENT
  Sex: Male
  Weight: 86 kg

DRUGS (6)
  1. ALKERAN [Suspect]
     Indication: STEM CELL TRANSPLANT
     Dosage: 270MG PER DAY
     Route: 042
     Dates: start: 20061113, end: 20061113
  2. RITUXAN [Concomitant]
     Indication: STEM CELL TRANSPLANT
     Dosage: 730MG PER DAY
     Route: 042
     Dates: start: 20061107, end: 20061107
  3. CYMERIN [Concomitant]
     Indication: STEM CELL TRANSPLANT
     Dosage: 580MG PER DAY
     Route: 042
     Dates: start: 20061108, end: 20061108
  4. CYLOCIDE [Concomitant]
     Indication: STEM CELL TRANSPLANT
     Dosage: 400MG PER DAY
     Route: 042
     Dates: start: 20061109, end: 20061112
  5. VEPESID [Concomitant]
     Indication: STEM CELL TRANSPLANT
     Dosage: 400MG PER DAY
     Route: 042
     Dates: start: 20061109, end: 20061112
  6. NEUTROGIN [Concomitant]
     Dosage: 250MCG PER DAY
     Dates: start: 20061119, end: 20061122

REACTIONS (1)
  - SEPSIS [None]
